FAERS Safety Report 7645785-6 (Version None)
Quarter: 2011Q3

REPORT INFORMATION
  Report Type: 
  Country: None (occurrence: None)
  Receive Date: 20110729
  Receipt Date: 20110720
  Transmission Date: 20111222
  Serious: Yes (Hospitalization, Other)
  Sender: FDA-Public Use
  Company Number: US-ASTRAZENECA-2007UW27063

PATIENT
  Age: 47 Year
  Sex: Male
  Weight: 91.6 kg

DRUGS (43)
  1. SEROQUEL [Suspect]
     Indication: BIPOLAR DISORDER
     Route: 048
     Dates: start: 19940101, end: 20070101
  2. RISPERDAL [Concomitant]
     Dates: start: 19971125, end: 19971212
  3. LEXAPRO [Concomitant]
     Dates: start: 20080701
  4. LORAZEPAM [Concomitant]
     Indication: SLEEP DISORDER
     Dosage: 0.5-3 MG
     Route: 048
     Dates: start: 20021209
  5. SYNTHROID [Concomitant]
     Dates: start: 20020917
  6. DIAZEPAM [Concomitant]
     Dates: start: 19971125
  7. ZOLOFT [Concomitant]
     Dates: start: 19971125
  8. BUSPAR [Concomitant]
     Dosage: THREE TIMES A DAY
     Dates: start: 19971212
  9. RISPERDAL [Concomitant]
     Dates: start: 20020917
  10. PROZAC [Concomitant]
     Dosage: 20 MG PULVULES
     Dates: start: 20001015
  11. LITHIUM CARBONATE [Concomitant]
     Route: 048
     Dates: start: 20021209
  12. CELEBREX [Concomitant]
     Route: 048
     Dates: start: 20020509
  13. AMBIEN [Concomitant]
     Indication: SLEEP DISORDER
     Dosage: 10-12.5 MG
     Route: 048
     Dates: start: 20021209
  14. DEPAKOTE [Concomitant]
     Dosage: 100-400
     Dates: start: 19971212
  15. CYCLOBENZAPRINE [Concomitant]
     Dates: start: 20020917
  16. MOBIC [Concomitant]
     Dosage: 7.5-75 MG
     Route: 048
     Dates: start: 20050328
  17. NEURONTIN [Concomitant]
     Dates: start: 20020703
  18. LITHIUM CARBONATE [Concomitant]
     Dates: start: 20020917
  19. HALOPERIDOL [Concomitant]
     Dates: start: 20020101
  20. TRAZODONE HCL [Concomitant]
     Dates: start: 20020917
  21. VESICARE [Concomitant]
     Route: 048
     Dates: start: 20060808
  22. STELAZINE [Concomitant]
     Dates: start: 19971125
  23. WELLBUTRIN [Concomitant]
     Dates: start: 19971212
  24. SEROQUEL [Suspect]
     Indication: DEPRESSION
     Route: 048
     Dates: start: 19940101, end: 20070101
  25. SEROQUEL [Suspect]
     Dosage: 25-400 MG
     Route: 048
     Dates: start: 19980918, end: 20070321
  26. SEROQUEL [Suspect]
     Dosage: 25 MG TO 100 MG
     Route: 048
     Dates: start: 20000919, end: 20090331
  27. PROZAC [Concomitant]
     Dates: start: 19940101
  28. TRAZODONE HCL [Concomitant]
     Dates: start: 20021209
  29. NEURONTIN [Concomitant]
     Dates: start: 19971212
  30. ATENOLOL [Concomitant]
     Dates: start: 20021209
  31. NEXIUM [Concomitant]
     Indication: GASTROOESOPHAGEAL REFLUX DISEASE
     Dosage: 40
     Dates: start: 20050328
  32. SOMA [Concomitant]
     Route: 048
     Dates: start: 20050328
  33. RITALIN [Concomitant]
     Indication: ATTENTION DEFICIT/HYPERACTIVITY DISORDER
     Route: 048
     Dates: start: 20050328
  34. ZYPREXA [Concomitant]
  35. PROZAC [Concomitant]
     Dosage: 60-180 MG
     Route: 048
     Dates: start: 20020828
  36. FLOMAX [Concomitant]
     Route: 048
     Dates: start: 20021209
  37. NEURONTIN [Concomitant]
     Dates: start: 20021031
  38. ATENOLOL [Concomitant]
     Dates: start: 20020917
  39. SEROQUEL [Suspect]
     Dosage: 25-400 MG
     Route: 048
     Dates: start: 19980918, end: 20070321
  40. SEROQUEL [Suspect]
     Dosage: 25 MG TO 100 MG
     Route: 048
     Dates: start: 20000919, end: 20090331
  41. ABILIFY [Concomitant]
     Dates: start: 20060101, end: 20070101
  42. SYNTHROID [Concomitant]
     Dosage: 0.1-0.2 MG
     Route: 048
     Dates: start: 20020828
  43. EFFEXOR [Concomitant]
     Dates: start: 19971125

REACTIONS (19)
  - TARDIVE DYSKINESIA [None]
  - URINARY TRACT INFECTION [None]
  - ARTHROPATHY [None]
  - SLEEP APNOEA SYNDROME [None]
  - MUSCULOSKELETAL PAIN [None]
  - MOVEMENT DISORDER [None]
  - TYPE 2 DIABETES MELLITUS [None]
  - HYPERLIPIDAEMIA [None]
  - KNEE DEFORMITY [None]
  - RENAL FAILURE [None]
  - RHABDOMYOLYSIS [None]
  - RENAL DISORDER [None]
  - NEPHROLITHIASIS [None]
  - HYPERCHOLESTEROLAEMIA [None]
  - OBESITY [None]
  - HAEMATURIA [None]
  - PATELLA FRACTURE [None]
  - BLOOD CHOLESTEROL INCREASED [None]
  - HYPERTONIC BLADDER [None]
